FAERS Safety Report 4558043-3 (Version None)
Quarter: 2005Q1

REPORT INFORMATION
  Report Type: 
  Country: None (occurrence: None)
  Receive Date: 20050121
  Receipt Date: 20040708
  Transmission Date: 20050727
  Serious: No
  Sender: FDA-Public Use
  Company Number: US-BRISTOL-MYERS SQUIBB COMPANY-12636874

PATIENT
  Age: 52 Year
  Sex: Female
  Weight: 95 kg

DRUGS (15)
  1. SERZONE [Suspect]
     Indication: DEPRESSION
     Dates: start: 19980401
  2. COMBIVENT [Concomitant]
  3. THEOPHYLLINE [Concomitant]
  4. ZYRTEC [Concomitant]
  5. SINGULAIR [Concomitant]
  6. VANCENASE [Concomitant]
  7. ESTRADIOL [Concomitant]
  8. ATENOLOL [Concomitant]
  9. ZOCOR [Concomitant]
  10. PLAVIX [Concomitant]
  11. NITROGEN [Concomitant]
  12. PROTONIX [Concomitant]
  13. VIOXX [Concomitant]
  14. LASIX [Concomitant]
  15. POTASSIUM CHLORIDE [Concomitant]

REACTIONS (3)
  - ASTHENIA [None]
  - BLOOD ALKALINE PHOSPHATASE INCREASED [None]
  - INSOMNIA [None]
